FAERS Safety Report 9175817 (Version 4)
Quarter: 2013Q3

REPORT INFORMATION
  Report Type: Spontaneous
  Country: NL (occurrence: NL)
  Receive Date: 20130320
  Receipt Date: 20130708
  Transmission Date: 20140515
  Serious: Yes (Other)
  Sender: FDA-Public Use
  Company Number: NL-GILEAD-2012-0064686

PATIENT
  Age: 33 Year
  Sex: Male

DRUGS (5)
  1. TRUVADA [Suspect]
     Indication: HIV INFECTION
     Dosage: 1 DF, QD
     Route: 048
     Dates: start: 200908, end: 201212
  2. EVIPLERA [Suspect]
     Indication: HIV INFECTION
     Dosage: 1 DF, QD
     Route: 048
     Dates: start: 20130225
  3. ISENTRESS [Interacting]
     Indication: HIV INFECTION
     Dosage: 2 DF, QD
     Route: 048
     Dates: start: 200908, end: 201212
  4. LAXEER BISACODYL [Concomitant]
     Dosage: 5 MG, UNK
  5. LOPERAMIDE [Concomitant]
     Dosage: 2 MG, UNK

REACTIONS (9)
  - Myalgia [Recovering/Resolving]
  - Myalgia [Recovered/Resolved]
  - Drug interaction [Recovering/Resolving]
  - Muscular weakness [Recovering/Resolving]
  - Upper extremity mass [Not Recovered/Not Resolved]
  - Micturition disorder [Recovered/Resolved]
  - Irritability [Not Recovered/Not Resolved]
  - Confusional state [Not Recovered/Not Resolved]
  - Insomnia [Recovered/Resolved]
